FAERS Safety Report 24868348 (Version 1)
Quarter: 2025Q1

REPORT INFORMATION
  Report Type: Spontaneous
  Country: US (occurrence: None)
  Receive Date: 20250120
  Receipt Date: 20250120
  Transmission Date: 20250408
  Serious: Yes (Disabling)
  Sender: FDA-CTU
  Company Number: None

PATIENT
  Age: 60 Year
  Sex: Female
  Weight: 60.75 kg

DRUGS (3)
  1. CIPROFLOXACIN [Suspect]
     Active Substance: CIPROFLOXACIN
     Indication: Kidney infection
     Dosage: OTHER QUANTITY : 20 TABLET(S);?FREQUENCY : TWICE A DAY;?
     Route: 048
     Dates: start: 20230325, end: 20230403
  2. BACTRIM [Concomitant]
     Active Substance: SULFAMETHOXAZOLE\TRIMETHOPRIM
  3. PRILOSEC [Concomitant]
     Active Substance: OMEPRAZOLE MAGNESIUM

REACTIONS (26)
  - Neuropathy peripheral [None]
  - Hypoaesthesia [None]
  - Hypoaesthesia [None]
  - Skin burning sensation [None]
  - Allodynia [None]
  - Thirst [None]
  - Sjogren^s syndrome [None]
  - Tachycardia [None]
  - Food intolerance [None]
  - Irritable bowel syndrome [None]
  - Dysbiosis [None]
  - Helicobacter infection [None]
  - Gastrointestinal motility disorder [None]
  - Weight decreased [None]
  - Reynold^s syndrome [None]
  - Alopecia [None]
  - Disturbance in attention [None]
  - Brain fog [None]
  - Memory impairment [None]
  - Depression [None]
  - Impaired work ability [None]
  - Loss of personal independence in daily activities [None]
  - Sleep disorder [None]
  - Quality of life decreased [None]
  - Family stress [None]
  - Drug resistance [None]

NARRATIVE: CASE EVENT DATE: 20230601
